FAERS Safety Report 8453671-7 (Version None)
Quarter: 2012Q2

REPORT INFORMATION
  Report Type: 
  Country: None (occurrence: None)
  Receive Date: 20120620
  Receipt Date: 20120612
  Transmission Date: 20120825
  Serious: Yes (Other)
  Sender: FDA-Public Use
  Company Number: GR-PFIZER INC-2010159180

PATIENT
  Age: 63 Year
  Sex: Female
  Weight: 90 kg

DRUGS (5)
  1. THYROHORMONE [Concomitant]
     Indication: HYPOTHYROIDISM
     Dosage: 100 UG, 1X/DAY
     Route: 048
     Dates: start: 20080220
  2. SUNITINIB MALATE [Suspect]
     Indication: METASTATIC RENAL CELL CARCINOMA
     Dosage: 50 MG, 1X/DAY, (SCHEDULE 4/2)
     Route: 048
     Dates: start: 20060821
  3. PREDNISOLONE [Concomitant]
     Dosage: 50 MG, 1X/DAY
  4. SUNITINIB MALATE [Suspect]
     Dosage: 37.5 MG, 1X/DAY, (SCHEDULE 4/2)
     Route: 048
  5. PREDNISOLONE [Concomitant]
     Indication: VASCULITIS
     Dosage: 20 MG, 1X/DAY
     Route: 048
     Dates: start: 20091014

REACTIONS (1)
  - OSTEONECROSIS OF JAW [None]
